FAERS Safety Report 6379254-0 (Version None)
Quarter: 2009Q3

REPORT INFORMATION
  Report Type: 
  Country: None (occurrence: None)
  Receive Date: 20090923
  Receipt Date: 20090923
  Transmission Date: 20100115
  Serious: Yes (Life-Threatening, Hospitalization)
  Sender: FDA-Public Use
  Company Number: None

PATIENT
  Sex: Male
  Weight: 76.6 kg

DRUGS (19)
  1. LANTUS [Suspect]
     Indication: TYPE 1 DIABETES MELLITUS
     Dosage: 25 UNITS SQ AM
     Route: 058
  2. INSULIN ASPART [Suspect]
     Indication: TYPE 1 DIABETES MELLITUS
     Dosage: 5 UNITS SQ TID
     Route: 058
  3. ASPIRIN [Concomitant]
  4. BACTRIM [Concomitant]
  5. CELLCEPT [Concomitant]
  6. CLOPIDOGREL [Concomitant]
  7. COLACE [Concomitant]
  8. WARFARIN SODIUM [Concomitant]
  9. FLOVENT [Concomitant]
  10. GANCICLOVIR [Concomitant]
  11. LANTUS [Concomitant]
  12. METOPROLOL TARTRATE [Concomitant]
  13. PREDNISONE [Concomitant]
  14. SIMVASTATIN [Concomitant]
  15. PROGRAF [Concomitant]
  16. ZANTAC [Concomitant]
  17. NYSTATIN [Concomitant]
  18. PERCOCET [Concomitant]
  19. RESTORIL [Concomitant]

REACTIONS (3)
  - BLOOD GLUCOSE INCREASED [None]
  - HYPOGLYCAEMIA [None]
  - SLUGGISHNESS [None]
